FAERS Safety Report 6120197-5 (Version None)
Quarter: 2009Q1

REPORT INFORMATION
  Report Type: 
  Country: None (occurrence: None)
  Receive Date: 20090316
  Receipt Date: 20090310
  Transmission Date: 20090719
  Serious: No
  Sender: FDA-Public Use
  Company Number: US-ABBOTT-09P-163-0561690-00

PATIENT
  Age: 66 Year
  Sex: Male

DRUGS (6)
  1. TRILIPIX [Suspect]
     Indication: DRUG USE FOR UNKNOWN INDICATION
     Dates: start: 20090201
  2. ACTOS [Concomitant]
     Indication: DRUG USE FOR UNKNOWN INDICATION
  3. PRAVASTATIN [Concomitant]
     Indication: DRUG USE FOR UNKNOWN INDICATION
     Route: 048
  4. GLIPIZIDE [Concomitant]
     Indication: DRUG USE FOR UNKNOWN INDICATION
     Route: 048
  5. METFORMIN HCL [Concomitant]
     Indication: DRUG USE FOR UNKNOWN INDICATION
     Route: 048
  6. AMLODIPINE BESYLATE [Concomitant]
     Indication: DRUG USE FOR UNKNOWN INDICATION

REACTIONS (1)
  - DEAFNESS [None]
